FAERS Safety Report 4685634-1 (Version None)
Quarter: 2005Q2

REPORT INFORMATION
  Report Type: 
  Country: None (occurrence: None)
  Receive Date: 20050608
  Receipt Date: 20050531
  Transmission Date: 20051028
  Serious: Yes (Other)
  Sender: FDA-Public Use
  Company Number: CA-MERCK-0506CAN00024

PATIENT
  Age: 53 Year
  Sex: Female

DRUGS (7)
  1. COZAAR [Suspect]
     Indication: BLOOD PRESSURE MANAGEMENT
     Route: 048
     Dates: start: 20010701, end: 20030101
  2. COZAAR [Suspect]
     Indication: PROTEIN URINE PRESENT
     Route: 048
     Dates: start: 20010701, end: 20030101
  3. CYCLOSPORINE [Concomitant]
     Indication: IMMUNOSUPPRESSION
     Route: 065
     Dates: start: 19960101
  4. AZATHIOPRINE [Concomitant]
     Indication: IMMUNOSUPPRESSION
     Route: 065
     Dates: start: 19960101
  5. PREDNISONE [Concomitant]
     Indication: IMMUNOSUPPRESSION
     Route: 065
     Dates: start: 19960101
  6. CAPTOPRIL [Concomitant]
     Indication: BLOOD PRESSURE MANAGEMENT
     Route: 065
     Dates: start: 19970101, end: 20010701
  7. CAPTOPRIL [Concomitant]
     Indication: PROTEIN URINE PRESENT
     Route: 065
     Dates: start: 19970101, end: 20010701

REACTIONS (6)
  - ABDOMINAL DISTENSION [None]
  - BLOOD PRESSURE ABNORMAL [None]
  - DYSPNOEA EXERTIONAL [None]
  - GRAFT COMPLICATION [None]
  - SCLERODERMA RENAL CRISIS [None]
  - SKIN TIGHTNESS [None]
